FAERS Safety Report 20059351 (Version 2)
Quarter: 2022Q1

REPORT INFORMATION
  Report Type: Spontaneous
  Country: JP (occurrence: JP)
  Receive Date: 20211111
  Receipt Date: 20220107
  Transmission Date: 20220423
  Serious: Yes (Hospitalization)
  Sender: FDA-Public Use
  Company Number: JP-MYLANLABS-2021M1082413

PATIENT
  Age: 32 Year
  Sex: Female
  Weight: 58 kg

DRUGS (6)
  1. MESALAMINE [Suspect]
     Active Substance: MESALAMINE
     Indication: Enterocolitis
     Dosage: 2000 MILLIGRAM, TIME-DEPENDENT RELEASE
     Route: 048
  2. MESALAMINE [Suspect]
     Active Substance: MESALAMINE
     Indication: Colitis ulcerative
  3. MESALAMINE [Suspect]
     Active Substance: MESALAMINE
     Indication: Enterocolitis
     Dosage: 1 GRAM
     Route: 065
  4. MESALAMINE [Suspect]
     Active Substance: MESALAMINE
     Indication: Colitis ulcerative
  5. SULFASALAZINE [Suspect]
     Active Substance: SULFASALAZINE
     Indication: SAPHO syndrome
     Dosage: ENTERIC-COATED TABLETS
     Route: 048
  6. SULFASALAZINE [Suspect]
     Active Substance: SULFASALAZINE
     Dosage: 500 MILLIGRAM, ENTERIC-COATED TABLETS
     Route: 048

REACTIONS (9)
  - Condition aggravated [Recovering/Resolving]
  - Enterocolitis [Recovering/Resolving]
  - Colitis ulcerative [Recovering/Resolving]
  - Drug intolerance [Recovering/Resolving]
  - Chills [Recovering/Resolving]
  - Pyrexia [Recovered/Resolved]
  - Arthralgia [Recovering/Resolving]
  - Headache [Recovering/Resolving]
  - Tremor [Recovering/Resolving]
